FAERS Safety Report 18567407 (Version 1)
Quarter: 2020Q4

REPORT INFORMATION
  Report Type: Spontaneous
  Country: CN (occurrence: CN)
  Receive Date: 20201202
  Receipt Date: 20201202
  Transmission Date: 20210114
  Serious: Yes (Other)
  Sender: FDA-Public Use
  Company Number: CN-ROCHE-2724390

PATIENT
  Age: 37 Year
  Sex: Female
  Weight: 45 kg

DRUGS (4)
  1. CISPLATIN. [Suspect]
     Active Substance: CISPLATIN
     Indication: CERVIX CARCINOMA
     Dosage: THE MOST RECENT DOSE WAS ON 07/OCT/2020, 24/OCT/2020, 31/OCT /2020 AND 07/NOV/2020
     Route: 041
     Dates: start: 20201010, end: 20201107
  2. SODIUM CHLORIDE. [Concomitant]
     Active Substance: SODIUM CHLORIDE
     Route: 041
     Dates: start: 20201010, end: 20201107
  3. SODIUM CHLORIDE. [Concomitant]
     Active Substance: SODIUM CHLORIDE
     Indication: CERVIX CARCINOMA
     Route: 041
     Dates: start: 20201009, end: 20201030
  4. AVASTIN [Suspect]
     Active Substance: BEVACIZUMAB
     Indication: CERVIX CARCINOMA
     Route: 041
     Dates: start: 20201009, end: 20201030

REACTIONS (3)
  - Intentional product use issue [Unknown]
  - Cytopenia [Recovering/Resolving]
  - Off label use [Unknown]

NARRATIVE: CASE EVENT DATE: 20201120
